FAERS Safety Report 9619259 (Version 1)
Quarter: 2013Q4

REPORT INFORMATION
  Report Type: Spontaneous
  Country: FR (occurrence: FR)
  Receive Date: 20131014
  Receipt Date: 20131014
  Transmission Date: 20140711
  Serious: Yes (Hospitalization)
  Sender: FDA-Public Use
  Company Number: FR-PFIZER INC-2013290009

PATIENT
  Age: 6 Year
  Sex: Female
  Weight: 25 kg

DRUGS (1)
  1. ZARONTIN [Suspect]
     Indication: PETIT MAL EPILEPSY
     Dosage: 1 DF, 2X/DAY
     Route: 048
     Dates: start: 201201, end: 201307

REACTIONS (3)
  - Anaemia [Recovering/Resolving]
  - Livedo reticularis [Recovering/Resolving]
  - Arthralgia [Recovering/Resolving]
